FAERS Safety Report 17194807 (Version 1)
Quarter: 2020Q1

REPORT INFORMATION
  Report Type: Spontaneous
  Country: US (occurrence: US)
  Receive Date: 20191223
  Receipt Date: 20191223
  Transmission Date: 20200409
  Serious: Yes (Hospitalization)
  Sender: FDA-Public Use
  Company Number: None

PATIENT
  Age: 64 Year
  Sex: Female

DRUGS (8)
  1. PANTOPRAZOLE TAB 40MG [Concomitant]
     Dates: start: 20191212
  2. FLUTICASONE APR 50MCG [Concomitant]
  3. DEXAMETHASON TAB 4MG [Concomitant]
     Active Substance: DEXAMETHASONE
     Dates: start: 20191212
  4. MELOXICAM TAB 15MG [Concomitant]
     Active Substance: MELOXICAM
     Dates: start: 20191115
  5. LISINOPRIL TAB 5MG [Concomitant]
     Active Substance: LISINOPRIL
     Dates: start: 20191221
  6. GABAPENTIN CAP 300MG [Concomitant]
     Active Substance: GABAPENTIN
     Dates: start: 20191114
  7. CAPECITABINE. [Suspect]
     Active Substance: CAPECITABINE
     Indication: GALLBLADDER CANCER
     Route: 048
     Dates: start: 20191115
  8. ONDANSETRON TAB 8MG [Concomitant]
     Active Substance: ONDANSETRON
     Dates: start: 20191212

REACTIONS (2)
  - Muscle spasms [None]
  - Chest discomfort [None]

NARRATIVE: CASE EVENT DATE: 20191201
